FAERS Safety Report 23011583 (Version 2)
Quarter: 2023Q4

REPORT INFORMATION
  Report Type: Report from Study
  Country: US (occurrence: US)
  Receive Date: 20230929
  Receipt Date: 20231121
  Transmission Date: 20240110
  Serious: Yes (Hospitalization, Other)
  Sender: FDA-Public Use
  Company Number: US-009507513-2304USA006900

PATIENT
  Age: 64 Year
  Sex: Female

DRUGS (18)
  1. PEMBROLIZUMAB [Suspect]
     Active Substance: PEMBROLIZUMAB
     Indication: Lung neoplasm malignant
     Dosage: 200 MG, EVERY THREE WEEKS
     Route: 042
     Dates: start: 20220215, end: 202206
  2. PEMBROLIZUMAB [Suspect]
     Active Substance: PEMBROLIZUMAB
     Indication: Lung adenocarcinoma
     Dosage: 200 MG, EVERY THREE WEEKS
     Dates: start: 20220714, end: 2022
  3. PEMBROLIZUMAB [Suspect]
     Active Substance: PEMBROLIZUMAB
     Dosage: 200 MG, EVERY THREE WEEKS
     Dates: start: 20221212
  4. PEMBROLIZUMAB [Suspect]
     Active Substance: PEMBROLIZUMAB
     Dosage: 200 MG, EVERY THREE WEEKS
     Dates: start: 20230802
  5. KEYTRUDA [Suspect]
     Active Substance: PEMBROLIZUMAB
     Indication: Lung neoplasm malignant
     Dosage: 200 MILLIGRAM, EVERY 21 DAYS
     Route: 042
     Dates: start: 20220215, end: 202206
  6. KEYTRUDA [Suspect]
     Active Substance: PEMBROLIZUMAB
     Indication: Lung adenocarcinoma
     Dosage: 200 MILLIGRAM, EVERY 21 DAYS
     Dates: start: 20220714, end: 2022
  7. KEYTRUDA [Suspect]
     Active Substance: PEMBROLIZUMAB
     Dosage: 200 MILLIGRAM, EVERY 21 DAYS
     Dates: start: 20221212
  8. KEYTRUDA [Suspect]
     Active Substance: PEMBROLIZUMAB
     Dosage: 200 MILLIGRAM, EVERY 21 DAYS
     Dates: start: 20230802
  9. BEVACIZUMAB [Suspect]
     Active Substance: BEVACIZUMAB
     Indication: Lung neoplasm malignant
     Dosage: 15 MG/KG EVERY 21 DAYS X 4-6 CYCLES
     Dates: start: 20220623, end: 202210
  10. BEVACIZUMAB [Suspect]
     Active Substance: BEVACIZUMAB
     Indication: Lung adenocarcinoma
  11. CARBOPLATIN [Suspect]
     Active Substance: CARBOPLATIN
     Indication: Lung neoplasm malignant
     Dosage: AREA UNDER THE CURVE (AUC) = 5, EVERY 21 DAYS X 4-6 CYCLES
     Dates: start: 20220623, end: 2022
  12. CARBOPLATIN [Suspect]
     Active Substance: CARBOPLATIN
     Indication: Lung adenocarcinoma
     Dosage: AREA UNDER THE CURVE (AUC) = 5, EVERY 21 DAYS X 4-6 CYCLES
     Dates: start: 20221212
  13. ALIMTA [Suspect]
     Active Substance: PEMETREXED DISODIUM
     Indication: Lung neoplasm malignant
     Dosage: 600 MG ALSO REPORTED AS 500 MG/M^2 AND 300/M^2, EVERY 21 DAYS X 4-6 CYCLES
     Dates: start: 20220623, end: 2022
  14. ALIMTA [Suspect]
     Active Substance: PEMETREXED DISODIUM
     Indication: Lung adenocarcinoma
     Dosage: 600 MG ALSO REPORTED AS 500 MG/M^2 AND 300/M^2, EVERY 21 DAYS X 4-6 CYCLES
     Dates: start: 20221212
  15. AROMASIN [Concomitant]
     Active Substance: EXEMESTANE
     Indication: Breast cancer stage II
     Dosage: 25 MILLIGRAM, QD
     Dates: start: 20060925
  16. DEXAMETHASONE [Concomitant]
     Active Substance: DEXAMETHASONE
     Indication: Breast cancer stage II
  17. SODIUM CHLORIDE [Concomitant]
     Active Substance: SODIUM CHLORIDE
     Dosage: 100 MILLILITER CHEMO INFUSION 200 MG
  18. SODIUM CHLORIDE [Concomitant]
     Active Substance: SODIUM CHLORIDE
     Dosage: 100 MILLILITER CHEMO INFUSION 600 MG

REACTIONS (25)
  - Malignant neoplasm progression [Unknown]
  - Seizure [Unknown]
  - Immune-mediated enterocolitis [Unknown]
  - Cardiac monitoring [Unknown]
  - Illness [Unknown]
  - Therapy partial responder [Unknown]
  - Microangiopathic haemolytic anaemia [Unknown]
  - Escherichia test positive [Unknown]
  - Klebsiella test positive [Unknown]
  - Lacrimation increased [Unknown]
  - Eyelid margin crusting [Unknown]
  - Blood albumin abnormal [Unknown]
  - Blood albumin abnormal [Unknown]
  - Blood glucose abnormal [Unknown]
  - Blood glucose abnormal [Unknown]
  - Protein total abnormal [Unknown]
  - Anxiety [Unknown]
  - Migraine [Unknown]
  - Wheezing [Unknown]
  - Visual impairment [Unknown]
  - Weight decreased [Unknown]
  - Asthenia [Unknown]
  - Fatigue [Unknown]
  - Dyspnoea [Unknown]
  - Herpes zoster [Unknown]

NARRATIVE: CASE EVENT DATE: 20220601
